FAERS Safety Report 5097068-9 (Version None)
Quarter: 2006Q3

REPORT INFORMATION
  Report Type: 
  Country: None (occurrence: None)
  Receive Date: 20060901
  Receipt Date: 20060815
  Transmission Date: 20061208
  Serious: Yes (Other)
  Sender: FDA-Public Use
  Company Number: US200608003802

PATIENT
  Age: 51 Year
  Sex: Male
  Weight: 113.4 kg

DRUGS (6)
  1. ZYPREXA [Suspect]
     Indication: SCHIZOPHRENIA
     Dosage: 10 MG ; 20 MG ; 10 MG ; 15 MG
     Dates: end: 20020701
  2. ZYPREXA [Suspect]
     Indication: SCHIZOPHRENIA
     Dosage: 10 MG ; 20 MG ; 10 MG ; 15 MG
     Dates: end: 20060301
  3. ZYPREXA [Suspect]
     Indication: SCHIZOPHRENIA
     Dosage: 10 MG ; 20 MG ; 10 MG ; 15 MG
     Dates: start: 20000401
  4. ZYPREXA [Suspect]
     Indication: SCHIZOPHRENIA
     Dosage: 10 MG ; 20 MG ; 10 MG ; 15 MG
     Dates: start: 20020701
  5. GEODON [Concomitant]
  6. PROZAC [Concomitant]

REACTIONS (3)
  - DIABETES MELLITUS [None]
  - HEPATITIS VIRAL [None]
  - METABOLIC DISORDER [None]
